FAERS Safety Report 9681652 (Version 2)
Quarter: 2014Q2

REPORT INFORMATION
  Report Type: Spontaneous
  Country: JP (occurrence: JP)
  Receive Date: 20131111
  Receipt Date: 20140408
  Transmission Date: 20141212
  Serious: Yes (Other)
  Sender: FDA-Public Use
  Company Number: JP-009507513-1311JPN000990

PATIENT
  Age: 75 Year
  Sex: Female

DRUGS (2)
  1. DIAZOXIDE CAPSULES 25 MG ^MSD^ [Suspect]
     Indication: INSULINOMA
     Dosage: DAILY DOSAGE UNKNOWN
     Route: 048
  2. DIAZOXIDE CAPSULES 25 MG ^MSD^ [Suspect]
     Indication: HYPOGLYCAEMIA

REACTIONS (4)
  - Vasculitis [Recovering/Resolving]
  - Purpura [Recovered/Resolved]
  - Renal impairment [Recovering/Resolving]
  - Platelet count decreased [Unknown]
